FAERS Safety Report 6601536-5 (Version None)
Quarter: 2010Q1

REPORT INFORMATION
  Report Type: 
  Country: None (occurrence: None)
  Receive Date: 20100225
  Receipt Date: 20091111
  Transmission Date: 20100710
  Serious: No
  Sender: FDA-Public Use
  Company Number: US-KINGPHARMUSA00001-K200901411

PATIENT
  Age: 77 Year
  Sex: Male
  Weight: 73.469 kg

DRUGS (2)
  1. FLECTOR [Suspect]
     Indication: FASCIITIS
     Dosage: 1 PATCH, EVERY 12 HOURS
     Route: 061
     Dates: start: 20091001, end: 20091001
  2. FLECTOR [Suspect]
     Indication: LIGAMENT INJURY

REACTIONS (1)
  - DRUG INEFFECTIVE [None]
